FAERS Safety Report 18383185 (Version 3)
Quarter: 2022Q1

REPORT INFORMATION
  Report Type: Spontaneous
  Country: CA (occurrence: CA)
  Receive Date: 20201014
  Receipt Date: 20220221
  Transmission Date: 20220423
  Serious: Yes (Death, Hospitalization, Other)
  Sender: FDA-Public Use
  Company Number: CA-MUNDIPHARMA RESEARCH LIMITED-CAN-2020-0011713

PATIENT
  Age: 56 Year
  Sex: Male

DRUGS (13)
  1. MORPHINE SULFATE [Suspect]
     Active Substance: MORPHINE SULFATE
     Indication: Product used for unknown indication
     Dosage: UNK
     Route: 065
  2. LANREOTIDE [Suspect]
     Active Substance: LANREOTIDE
     Indication: Product used for unknown indication
     Dosage: UNK
     Route: 065
  3. SANDOSTATIN [Suspect]
     Active Substance: OCTREOTIDE ACETATE
     Indication: Neuroendocrine tumour
     Dosage: 20 MG, MONTHLY
     Route: 030
  4. SANDOSTATIN [Suspect]
     Active Substance: OCTREOTIDE ACETATE
     Indication: Carcinoid tumour
     Dosage: 30 MG, MONTHLY
     Route: 030
  5. SANDOSTATIN [Suspect]
     Active Substance: OCTREOTIDE ACETATE
     Dosage: UNK, TID
     Route: 058
  6. SANDOSTATIN [Suspect]
     Active Substance: OCTREOTIDE ACETATE
     Dosage: 30 MG, MONTHLY
     Route: 030
  7. SANDOSTATIN [Suspect]
     Active Substance: OCTREOTIDE ACETATE
     Dosage: 30 MG, MONTHLY
     Route: 030
  8. SANDOSTATIN [Suspect]
     Active Substance: OCTREOTIDE ACETATE
     Dosage: UNK, EVERY THREE DAYS
     Route: 058
  9. SANDOSTATIN [Suspect]
     Active Substance: OCTREOTIDE ACETATE
     Dosage: 20 MG, MONTHLY
     Route: 030
  10. SANDOSTATIN [Suspect]
     Active Substance: OCTREOTIDE ACETATE
     Dosage: 20 MG, MONTHLY
     Route: 030
  11. SANDOSTATIN [Suspect]
     Active Substance: OCTREOTIDE ACETATE
     Dosage: UNK, (3 EVERY 1 DAYS)
     Route: 058
  12. FERRIC POLYSACCHARIDE COMPLEX [Concomitant]
     Active Substance: FERRIC POLYSACCHARIDE COMPLEX
     Indication: Product used for unknown indication
     Dosage: 150 MG, BID
     Route: 065
  13. FERRIC POLYSACCHARIDE COMPLEX [Concomitant]
     Active Substance: FERRIC POLYSACCHARIDE COMPLEX
     Dosage: 150 MG, BID
     Route: 065

REACTIONS (50)
  - Abdominal distension [Fatal]
  - Abdominal pain [Fatal]
  - Anaemia [Fatal]
  - Biliary obstruction [Fatal]
  - Biliary tract infection [Fatal]
  - Blood alkaline phosphatase increased [Fatal]
  - Blood glucose increased [Fatal]
  - Blood pressure increased [Fatal]
  - Blood pressure systolic increased [Fatal]
  - Body temperature decreased [Fatal]
  - Chills [Fatal]
  - Diarrhoea [Fatal]
  - Dizziness [Fatal]
  - Drug intolerance [Fatal]
  - Escherichia infection [Fatal]
  - Fatigue [Fatal]
  - Gamma-glutamyltransferase increased [Fatal]
  - Gastrointestinal haemorrhage [Fatal]
  - Haematocrit decreased [Fatal]
  - Haemoglobin decreased [Fatal]
  - Haemorrhage [Fatal]
  - Hyperhidrosis [Fatal]
  - Infection [Fatal]
  - Influenza [Fatal]
  - Injection site haemorrhage [Fatal]
  - Injection site pain [Fatal]
  - Lethargy [Fatal]
  - Malaise [Fatal]
  - Malignant neoplasm progression [Fatal]
  - Musculoskeletal pain [Fatal]
  - Myalgia [Fatal]
  - Nausea [Fatal]
  - Pain [Fatal]
  - Platelet count increased [Fatal]
  - Pyrexia [Fatal]
  - Red blood cell count decreased [Fatal]
  - Sepsis [Fatal]
  - Serum ferritin decreased [Fatal]
  - Syncope [Fatal]
  - Vomiting [Fatal]
  - Weight decreased [Fatal]
  - White blood cell count increased [Fatal]
  - Liver injury [Fatal]
  - Metastases to liver [Fatal]
  - Multiple organ dysfunction syndrome [Fatal]
  - Post procedural haemorrhage [Fatal]
  - Pulmonary oedema [Fatal]
  - Renal failure [Fatal]
  - Sinusitis [Fatal]
  - Internal haemorrhage [Fatal]
